FAERS Safety Report 9122443 (Version 3)
Quarter: 2013Q2

REPORT INFORMATION
  Report Type: Spontaneous
  Country: JP (occurrence: JP)
  Receive Date: 20130227
  Receipt Date: 20130404
  Transmission Date: 20140414
  Serious: No
  Sender: FDA-Public Use
  Company Number: JP-BRISTOL-MYERS SQUIBB COMPANY-17418179

PATIENT
  Age: 3 Decade
  Sex: Male

DRUGS (1)
  1. ABILIFY TABS [Suspect]
     Indication: SCHIZOPHRENIA
     Dosage: 18 MG OR 24 MG
     Route: 048

REACTIONS (1)
  - Loss of consciousness [Recovered/Resolved]
